FAERS Safety Report 17193237 (Version 2)
Quarter: 2020Q1

REPORT INFORMATION
  Report Type: Spontaneous
  Country: CA (occurrence: CA)
  Receive Date: 20191223
  Receipt Date: 20200110
  Transmission Date: 20200409
  Serious: Yes (Other)
  Sender: FDA-Public Use
  Company Number: NVSC2019CA075705

PATIENT
  Age: 35 Year
  Sex: Male

DRUGS (1)
  1. IMATINIB. [Suspect]
     Active Substance: IMATINIB MESYLATE
     Indication: HYPEREOSINOPHILIC SYNDROME
     Dosage: 400 MG, QD
     Route: 065
     Dates: start: 201710, end: 201802

REACTIONS (8)
  - Muscular weakness [Recovered/Resolved]
  - Sensory loss [Recovered/Resolved]
  - Myelitis transverse [Recovered/Resolved]
  - Urinary retention [Recovered/Resolved]
  - Optic neuritis [Recovered/Resolved]
  - Demyelination [Recovered/Resolved]
  - Blindness [Recovered/Resolved]
  - Eye pain [Recovered/Resolved]

NARRATIVE: CASE EVENT DATE: 20180107
